FAERS Safety Report 8535457-8 (Version None)
Quarter: 2012Q3

REPORT INFORMATION
  Report Type: 
  Country: None (occurrence: None)
  Receive Date: 20120725
  Receipt Date: 20120709
  Transmission Date: 20120928
  Serious: No
  Sender: FDA-Public Use
  Company Number: US-009507513-2012SP006829

PATIENT

DRUGS (6)
  1. VICTRELIS [Suspect]
     Dates: start: 20111201
  2. ALEVE [Concomitant]
  3. TRAZODONE HYDROCHLORIDE [Concomitant]
  4. PEG-INTRON [Suspect]
     Indication: HEPATITIS C
     Route: 058
     Dates: start: 20111101
  5. RIBASPHERE [Suspect]
     Dates: start: 20111101
  6. CITALOPRAM HYDROBROMIDE [Concomitant]

REACTIONS (7)
  - OVERDOSE [None]
  - IMPULSIVE BEHAVIOUR [None]
  - FATIGUE [None]
  - INSOMNIA [None]
  - CHILLS [None]
  - INFLUENZA LIKE ILLNESS [None]
  - AGGRESSION [None]
